FAERS Safety Report 9812557 (Version 2)
Quarter: 2014Q1

REPORT INFORMATION
  Report Type: Spontaneous
  Country: JP (occurrence: JP)
  Receive Date: 20140113
  Receipt Date: 20140203
  Transmission Date: 20141002
  Serious: Yes (Other)
  Sender: FDA-Public Use
  Company Number: JP-JNJFOC-20140104420

PATIENT
  Age: 52 Year
  Sex: Male

DRUGS (4)
  1. XEPLION [Suspect]
     Indication: SCHIZOPHRENIA
     Route: 030
     Dates: start: 20131210, end: 20131210
  2. RISPERDAL CONSTA [Suspect]
     Indication: SCHIZOPHRENIA
     Route: 030
  3. MAGMITT [Concomitant]
     Indication: CONSTIPATION
     Route: 048
  4. OLANZAPINE [Concomitant]
     Indication: SCHIZOPHRENIA
     Route: 065

REACTIONS (2)
  - Ileus paralytic [Recovered/Resolved]
  - Sepsis [Recovered/Resolved]
